FAERS Safety Report 7644691-0 (Version None)
Quarter: 2011Q3

REPORT INFORMATION
  Report Type: 
  Country: None (occurrence: None)
  Receive Date: 20110725
  Receipt Date: 20110712
  Transmission Date: 20111222
  Serious: Yes (Other)
  Sender: FDA-Public Use
  Company Number: 983987

PATIENT
  Sex: 0

DRUGS (3)
  1. LEUCOVORIN CALCIUM [Suspect]
     Indication: CHEMOTHERAPY
  2. FLUOROURACIL [Suspect]
     Indication: CHEMOTHERAPY
  3. OXALIPLATIN [Suspect]
     Indication: CHEMOTHERAPY

REACTIONS (1)
  - INTERSTITIAL LUNG DISEASE [None]
